FAERS Safety Report 9983460 (Version 1)
Quarter: 2014Q1

REPORT INFORMATION
  Report Type: Spontaneous
  Country: TW (occurrence: TW)
  Receive Date: 20140307
  Receipt Date: 20140307
  Transmission Date: 20141002
  Serious: Yes (Death, Hospitalization)
  Sender: FDA-Public Use
  Company Number: PHHY2014TW027718

PATIENT
  Age: 73 Year
  Sex: Female

DRUGS (1)
  1. TELBIVUDINE [Suspect]

REACTIONS (14)
  - Hepatic failure [Fatal]
  - Hepatic neoplasm [Unknown]
  - Tumour invasion [Unknown]
  - Retroperitoneal lymphadenopathy [Unknown]
  - Vena cava thrombosis [Unknown]
  - Ascites [Unknown]
  - Coagulopathy [Unknown]
  - Rhabdomyolysis [Unknown]
  - Blood lactate dehydrogenase increased [Unknown]
  - Myoglobin blood increased [Unknown]
  - Asthenia [Unknown]
  - Myalgia [Unknown]
  - Blood creatine phosphokinase increased [Unknown]
  - Troponin increased [Unknown]
